FAERS Safety Report 5706169-0 (Version None)
Quarter: 2008Q2

REPORT INFORMATION
  Report Type: 
  Country: None (occurrence: None)
  Receive Date: 20080415
  Receipt Date: 20080403
  Transmission Date: 20081010
  Serious: Yes (Other)
  Sender: FDA-Public Use
  Company Number: US-PFIZER INC-2008030871

PATIENT
  Sex: Female

DRUGS (2)
  1. CHANTIX [Suspect]
  2. CLINDAMYCIN HYDROCHLORIDE [Suspect]
     Indication: TOOTH ABSCESS

REACTIONS (4)
  - DISBACTERIOSIS [None]
  - DYSPEPSIA [None]
  - GASTRIC DISORDER [None]
  - TOOTH ABSCESS [None]
